APPROVED DRUG PRODUCT: ZOLEDRONIC ACID
Active Ingredient: ZOLEDRONIC ACID
Strength: EQ 4MG BASE/5ML
Dosage Form/Route: INJECTABLE;INTRAVENOUS
Application: A090621 | Product #001
Applicant: HOSPIRA INC
Approved: Mar 19, 2015 | RLD: No | RS: No | Type: DISCN